FAERS Safety Report 13854368 (Version 2)
Quarter: 2017Q3

REPORT INFORMATION
  Report Type: Spontaneous
  Country: US (occurrence: US)
  Receive Date: 20170809
  Receipt Date: 20170901
  Transmission Date: 20171127
  Serious: Yes (Hospitalization)
  Sender: FDA-Public Use
  Company Number: US-ALLERGAN-1733313US

PATIENT
  Age: 82 Year
  Sex: Female

DRUGS (2)
  1. FEMRING [Suspect]
     Active Substance: ESTRADIOL ACETATE
     Indication: HOT FLUSH
     Dosage: 1 DF, Q3MONTHS
     Route: 067
     Dates: start: 2012, end: 201706
  2. FEMRING [Suspect]
     Active Substance: ESTRADIOL ACETATE
     Dosage: 1 DF, Q3MONTHS
     Route: 067
     Dates: start: 201708

REACTIONS (1)
  - Cardiac disorder [Recovered/Resolved]

NARRATIVE: CASE EVENT DATE: 201706
